FAERS Safety Report 9659463 (Version 3)
Quarter: 2014Q1

REPORT INFORMATION
  Report Type: Report from Study
  Country: AU (occurrence: AU)
  Receive Date: 20131031
  Receipt Date: 20140128
  Transmission Date: 20141002
  Serious: Yes (Hospitalization)
  Sender: FDA-Public Use
  Company Number: PHHY2013AU089634

PATIENT
  Age: 34 Year
  Sex: Male
  Weight: 140 kg

DRUGS (25)
  1. CLOZARIL [Suspect]
     Indication: PSYCHOTIC DISORDER
     Dosage: 700 MG DAILY
     Dates: start: 19980303, end: 20131018
  2. CLOZARIL [Suspect]
     Dosage: 300 MG
  3. CLOZARIL [Suspect]
     Dosage: 250 MG
  4. RISPERIDONE [Suspect]
     Indication: PSYCHOTIC DISORDER
     Dosage: 7.5 MG DAILY
     Route: 048
     Dates: start: 2004, end: 20130820
  5. RISPERIDONE [Suspect]
     Dosage: 7.5 MG
     Route: 048
     Dates: start: 1999, end: 20130820
  6. AMISULPRIDE [Concomitant]
     Indication: PSYCHOTIC DISORDER
     Dosage: 200 MG
  7. EPILIM [Concomitant]
     Indication: EPILEPSY
     Dosage: 1000 MG
     Route: 048
  8. ZOLOFT [Concomitant]
     Dosage: 300 MG, NOCTE
  9. SERTRALINE [Concomitant]
     Indication: OBSESSIVE-COMPULSIVE DISORDER
     Dosage: 300 MG
     Route: 048
  10. SERTRALINE [Concomitant]
     Dosage: 200 MG, DAILY
     Route: 048
     Dates: start: 1999
  11. OXOFEN [Concomitant]
     Indication: THYROID ATROPHY
     Dosage: 200 MG
     Route: 048
  12. LOVAN [Concomitant]
     Indication: EPILEPSY
     Dosage: 2.5 MG NOCTE
     Route: 048
  13. RUXIM [Concomitant]
     Indication: GOUT
     Dosage: 20 MG NOCT
     Route: 048
  14. VENTOR//NIMESULIDE [Concomitant]
     Indication: CHLAMYDIAL INFECTION
     Dosage: 40 MG NOCT
  15. NEXIUM 1-2-3 [Concomitant]
     Indication: GASTROOESOPHAGEAL REFLUX DISEASE
     Dosage: 20 MG, NOCTE
     Route: 048
  16. CRESTOR [Concomitant]
     Indication: BLOOD CHOLESTEROL
     Dosage: 40 MG, NOCTE
     Route: 048
  17. SODIUM VALPROATE [Concomitant]
     Indication: EPILEPSY
     Dosage: 3000 MG, UNK
     Route: 048
  18. SODIUM VALPROATE [Concomitant]
     Indication: CONVULSION
     Dosage: 2500 MG, DAILY
     Route: 048
     Dates: start: 1999
  19. ROSUVASTATIN [Concomitant]
     Indication: BLOOD CHOLESTEROL
     Dosage: 250 MG, UNK
  20. METFORMIN [Concomitant]
     Indication: TYPE 2 DIABETES MELLITUS
     Dosage: 1000 MG, BID
     Route: 048
  21. METFORMIN [Concomitant]
     Dosage: 3000 MG, DAILY
     Route: 048
     Dates: start: 2004
  22. SOLIUM [Concomitant]
     Dosage: 300 MG, NOCTE
  23. ATIVAN [Concomitant]
     Dosage: 2.5 MG, NOCTE
  24. SIMVASTIN [Concomitant]
     Indication: HYPERCHOLESTEROLAEMIA
     Dosage: 80 MG, DAILY
     Route: 048
     Dates: start: 1999
  25. THYROXINE [Concomitant]
     Indication: THYROIDITIS
     Dosage: 200 MG, DAILY
     Route: 048
     Dates: start: 2004

REACTIONS (8)
  - Sleep apnoea syndrome [Recovered/Resolved]
  - Metabolic syndrome [Recovered/Resolved]
  - Central obesity [Recovered/Resolved]
  - Epilepsy [Recovered/Resolved]
  - Priapism [Recovered/Resolved]
  - Suicidal behaviour [Recovered/Resolved]
  - Psychotic disorder [Recovered/Resolved]
  - Antipsychotic drug level decreased [Unknown]
